FAERS Safety Report 8292328-2 (Version None)
Quarter: 2012Q2

REPORT INFORMATION
  Report Type: 
  Country: None (occurrence: None)
  Receive Date: 20120417
  Receipt Date: 20120406
  Transmission Date: 20120825
  Serious: Yes (Life-Threatening)
  Sender: FDA-Public Use
  Company Number: JP-FRI-1000029813

PATIENT
  Sex: Female

DRUGS (4)
  1. CYMBALTA [Concomitant]
     Dosage: 50 MG
     Route: 048
  2. LEXAPRO [Suspect]
     Indication: DEPRESSION
     Dosage: 10 MG
     Route: 048
  3. LEXAPRO [Suspect]
     Dosage: 20 MG
     Route: 048
  4. AMITRIPTYLINE HCL [Concomitant]
     Dosage: 40 MG
     Route: 048

REACTIONS (2)
  - CONSTIPATION [None]
  - SEPSIS [None]
